FAERS Safety Report 5261166-7 (Version None)
Quarter: 2007Q1

REPORT INFORMATION
  Report Type: 
  Country: None (occurrence: None)
  Receive Date: 20070309
  Receipt Date: 20070227
  Transmission Date: 20070707
  Serious: Yes (Hospitalization, Other)
  Sender: FDA-Public Use
  Company Number: US-PFIZER INC-2007002718

PATIENT
  Sex: Male
  Weight: 95.3 kg

DRUGS (10)
  1. LYRICA [Suspect]
     Indication: MIGRAINE PROPHYLAXIS
     Route: 048
     Dates: start: 20061004, end: 20061101
  2. PAMELOR [Suspect]
     Indication: MIGRAINE
     Dates: start: 20061004, end: 20061201
  3. PERCOCET [Suspect]
     Route: 048
  4. RITALIN [Suspect]
     Route: 048
  5. FENTANYL [Suspect]
     Route: 060
  6. COMPAZINE [Suspect]
  7. IMITREX [Concomitant]
  8. ACTIQ [Concomitant]
  9. DRAMAMINE [Concomitant]
  10. SERZONE [Concomitant]

REACTIONS (14)
  - AMNESIA [None]
  - CEREBROVASCULAR ACCIDENT [None]
  - DISORIENTATION [None]
  - DROOLING [None]
  - DRUG INEFFECTIVE [None]
  - FEELING ABNORMAL [None]
  - GAIT DISTURBANCE [None]
  - INCORRECT DOSE ADMINISTERED [None]
  - MIGRAINE [None]
  - SEDATION [None]
  - SLEEP DISORDER [None]
  - SLEEP WALKING [None]
  - UNEVALUABLE EVENT [None]
  - VISION BLURRED [None]
